FAERS Safety Report 10484257 (Version 2)
Quarter: 2014Q4

REPORT INFORMATION
  Report Type: Spontaneous
  Country: CH (occurrence: CH)
  Receive Date: 20140930
  Receipt Date: 20141111
  Transmission Date: 20150528
  Serious: Yes (Death, Other)
  Sender: FDA-Public Use
  Company Number: CH-OTSUKA-US-2014-13055

PATIENT

DRUGS (4)
  1. FLUDARABINE [Suspect]
     Active Substance: FLUDARABINE PHOSPHATE
     Indication: IMMUNOSUPPRESSANT DRUG THERAPY
     Dosage: 30 MG/M2, QD, ON DAYS -8 TO -3
     Route: 042
  2. BUSULFEX [Suspect]
     Active Substance: BUSULFAN
     Indication: STEM CELL TRANSPLANT
     Dosage: 9.6 MG/KG, QD ON DAYS-8 TO-3
     Route: 042
  3. MYCOPHENOLATE MOFETIL. [Concomitant]
     Active Substance: MYCOPHENOLATE MOFETIL
     Indication: PROPHYLAXIS AGAINST GRAFT VERSUS HOST DISEASE
     Dosage: 1200 MG/M2, BID FROM DAY 0 TO DAY 100
     Route: 065
  4. ALEMTUZUMAB [Suspect]
     Active Substance: ALEMTUZUMAB
     Indication: STEM CELL TRANSPLANT
     Dosage: 0.5 MG/KG, ON DAYS -8 TO -6
     Route: 065

REACTIONS (6)
  - Disease recurrence [Unknown]
  - Brain abscess [Unknown]
  - Acute graft versus host disease in intestine [Unknown]
  - Chronic graft versus host disease [Unknown]
  - Post transplant lymphoproliferative disorder [Fatal]
  - Lung abscess [Unknown]
